FAERS Safety Report 16323455 (Version 1)
Quarter: 2019Q2

REPORT INFORMATION
  Report Type: Spontaneous
  Country: RU (occurrence: RU)
  Receive Date: 20190517
  Receipt Date: 20190517
  Transmission Date: 20190711
  Serious: Yes (Other)
  Sender: FDA-Public Use
  Company Number: RU-TEVA-2019-RU-1052239

PATIENT
  Age: 36 Year
  Sex: Female

DRUGS (1)
  1. FINLEPSIN [Suspect]
     Active Substance: CARBAMAZEPINE
     Route: 065
     Dates: start: 201901

REACTIONS (4)
  - Lip ulceration [Recovered/Resolved]
  - Lip swelling [Recovered/Resolved]
  - Ulcer haemorrhage [Recovered/Resolved]
  - Mouth ulceration [Recovered/Resolved]

NARRATIVE: CASE EVENT DATE: 201901
